FAERS Safety Report 15283944 (Version 1)
Quarter: 2018Q3

REPORT INFORMATION
  Report Type: Spontaneous
  Country: JP (occurrence: JP)
  Receive Date: 20180816
  Receipt Date: 20180816
  Transmission Date: 20181010
  Serious: Yes (Other)
  Sender: FDA-Public Use
  Company Number: PHJP2018JP011646

PATIENT
  Age: 20 Year
  Sex: Male

DRUGS (3)
  1. ANTEBATE [Concomitant]
     Active Substance: BETAMETHASONE DIPROPIONATE
     Indication: RASH
     Dosage: UNK
     Route: 061
     Dates: start: 20151027
  2. TRAMCET [Concomitant]
     Active Substance: ACETAMINOPHEN\TRAMADOL
     Indication: PRODUCT USED FOR UNKNOWN INDICATION
     Dosage: 1 DF, QD (PRN)
     Route: 048
     Dates: start: 20170806
  3. COSENTYX [Suspect]
     Active Substance: SECUKINUMAB
     Indication: PSORIATIC ARTHROPATHY
     Dosage: 150 MG, QMO
     Route: 058
     Dates: start: 20151102, end: 20180509

REACTIONS (13)
  - Pyrexia [Recovering/Resolving]
  - Hepatic enzyme increased [Recovering/Resolving]
  - Neck pain [Recovering/Resolving]
  - Nasopharyngitis [Recovering/Resolving]
  - Hepatic function abnormal [Recovering/Resolving]
  - Viral infection [Recovering/Resolving]
  - Malaise [Recovering/Resolving]
  - Lymphadenopathy [Recovering/Resolving]
  - Hepatosplenomegaly [Recovering/Resolving]
  - Lymphadenitis [Recovering/Resolving]
  - Neutropenia [Recovering/Resolving]
  - Histiocytic necrotising lymphadenitis [Recovering/Resolving]
  - White blood cell count decreased [Recovering/Resolving]

NARRATIVE: CASE EVENT DATE: 20180515
